FAERS Safety Report 7405900-6 (Version None)
Quarter: 2011Q2

REPORT INFORMATION
  Report Type: 
  Country: None (occurrence: None)
  Receive Date: 20110411
  Receipt Date: 20110330
  Transmission Date: 20111010
  Serious: Yes (Other)
  Sender: FDA-Public Use
  Company Number: US-PFIZER INC-US-WYE-H14973410

PATIENT
  Sex: Female
  Weight: 69 kg

DRUGS (6)
  1. ENBREL [Concomitant]
     Dosage: UNK
  2. OMEPRAZOLE [Concomitant]
     Dosage: UNK
  3. EFFEXOR XR [Suspect]
     Indication: DEPRESSION
     Dosage: 300 MG, 1X/DAY
     Route: 048
     Dates: start: 19980101, end: 20100401
  4. PRISTIQ [Suspect]
     Indication: DEPRESSION
     Dosage: 50 MG, 1X/DAY
     Route: 048
     Dates: start: 20100401
  5. ZOLOFT [Suspect]
     Dosage: UNK
  6. ALPRAZOLAM [Concomitant]
     Indication: PANIC ATTACK
     Dosage: UNK

REACTIONS (12)
  - WEIGHT INCREASED [None]
  - STRESS [None]
  - PSORIASIS [None]
  - FEELING ABNORMAL [None]
  - WEIGHT DECREASED [None]
  - DRUG WITHDRAWAL SYNDROME [None]
  - HYPOTHYROIDISM [None]
  - DIZZINESS [None]
  - CRYING [None]
  - DEPRESSION [None]
  - EMOTIONAL DISORDER [None]
  - PANIC REACTION [None]
